FAERS Safety Report 5318049-3 (Version None)
Quarter: 2007Q2

REPORT INFORMATION
  Report Type: 
  Country: None (occurrence: None)
  Receive Date: 20070504
  Receipt Date: 20070504
  Transmission Date: 20071010
  Serious: Yes (Life-Threatening)
  Sender: FDA-Public Use
  Company Number: None

PATIENT
  Age: 70 Year
  Sex: Male
  Weight: 111.7 kg

DRUGS (12)
  1. CEFTAZIDIME [Suspect]
     Indication: SEPSIS
     Dosage: 1G Q8H
     Dates: start: 20070310, end: 20070312
  2. ENOXAPARIN INJ [Concomitant]
  3. ALBUTEROL/IPRATROPIUM SOLN, INHL [Concomitant]
  4. METOPROLOL TARTRATE INJ [Concomitant]
  5. LORAZEPAM [Concomitant]
  6. ALBUTEROL SOLN, INHL [Concomitant]
  7. COUMADIN [Concomitant]
  8. INSULIN REG HUMAN 100 UNIT/ML NOVOLIN R [Concomitant]
  9. LEVALBUTEROL TARTRATE INHL, ORAL [Concomitant]
  10. ACETAMINOPHEN SUPP, RTL [Concomitant]
  11. ACYCLOVIR [Concomitant]
  12. VANCOMYCIN HCL [Concomitant]

REACTIONS (1)
  - ANAPHYLACTIC REACTION [None]
